FAERS Safety Report 5954910-4 (Version None)
Quarter: 2008Q4

REPORT INFORMATION
  Report Type: 
  Country: None (occurrence: None)
  Receive Date: 20081117
  Receipt Date: 20081016
  Transmission Date: 20090506
  Serious: No
  Sender: FDA-Public Use
  Company Number: US-BAYER-200836078NA

PATIENT
  Age: 56 Year
  Sex: Female
  Weight: 54 kg

DRUGS (1)
  1. CLIMARA [Suspect]
     Route: 062
     Dates: start: 20030101

REACTIONS (2)
  - HOT FLUSH [None]
  - VULVOVAGINAL DRYNESS [None]
